FAERS Safety Report 13514741 (Version 1)
Quarter: 2017Q2

REPORT INFORMATION
  Report Type: Spontaneous
  Country: FR (occurrence: FR)
  Receive Date: 20170504
  Receipt Date: 20170504
  Transmission Date: 20170830
  Serious: Yes (Other)
  Sender: FDA-Public Use
  Company Number: FR-ALLERGAN-1716961US

PATIENT
  Sex: Male

DRUGS (1)
  1. ESCITALOPRAM OXALATE - BP [Suspect]
     Active Substance: ESCITALOPRAM OXALATE
     Indication: PRODUCT USED FOR UNKNOWN INDICATION
     Dosage: 10 MG, QD
     Route: 064

REACTIONS (6)
  - Electrocardiogram QT prolonged [Unknown]
  - Tachycardia foetal [Unknown]
  - Neonatal respiratory distress syndrome [Unknown]
  - Hypotonia neonatal [Unknown]
  - Foetal exposure during pregnancy [Unknown]
  - Apgar score low [Unknown]
